FAERS Safety Report 15337552 (Version 4)
Quarter: 2019Q3

REPORT INFORMATION
  Report Type: Spontaneous
  Country: US (occurrence: US)
  Receive Date: 20180831
  Receipt Date: 20190822
  Transmission Date: 20191004
  Serious: No
  Sender: FDA-Public Use
  Company Number: US-PFIZER INC-2018350575

PATIENT
  Age: 86 Year
  Sex: Male
  Weight: 107 kg

DRUGS (1)
  1. LYRICA [Suspect]
     Active Substance: PREGABALIN
     Dosage: 900 MG, DAILY (ONE CAPSULE IN THE MORNING, TWO CAPSULES AT NIGHT)
     Route: 048

REACTIONS (2)
  - Pain [Not Recovered/Not Resolved]
  - Prescribed overdose [Unknown]
